FAERS Safety Report 8273989-0 (Version None)
Quarter: 2012Q2

REPORT INFORMATION
  Report Type: 
  Country: None (occurrence: None)
  Receive Date: 20120409
  Receipt Date: 20120323
  Transmission Date: 20120825
  Serious: Yes (Other)
  Sender: FDA-Public Use
  Company Number: 2012SGN00092

PATIENT
  Sex: Female

DRUGS (2)
  1. BENZODIAZEPINE DERIVATIVES [Concomitant]
  2. ADCETRIS [Suspect]
     Indication: MYCOSIS FUNGOIDES
     Dosage: 1.8 MG/KG, Q21D, INTRAVENOUS
     Route: 042
     Dates: start: 20111201, end: 20120208

REACTIONS (4)
  - NUCLEAR MAGNETIC RESONANCE IMAGING BRAIN ABNORMAL [None]
  - MENTAL STATUS CHANGES [None]
  - PROGRESSIVE MULTIFOCAL LEUKOENCEPHALOPATHY [None]
  - CONFUSIONAL STATE [None]
